FAERS Safety Report 23773990 (Version 1)
Quarter: 2024Q2

REPORT INFORMATION
  Report Type: Spontaneous
  Country: US (occurrence: None)
  Receive Date: 20240422
  Receipt Date: 20240422
  Transmission Date: 20240716
  Serious: No
  Sender: FDA-Public Use
  Company Number: None

PATIENT
  Age: 70 Year
  Sex: Female
  Weight: 57.61 kg

DRUGS (2)
  1. DUPIXENT [Suspect]
     Active Substance: DUPILUMAB
  2. DUPIXENT [Concomitant]
     Active Substance: DUPILUMAB
     Dates: start: 20240419, end: 20240422

REACTIONS (5)
  - Vision blurred [None]
  - Ageusia [None]
  - Anosmia [None]
  - Product complaint [None]
  - Injection site pain [None]

NARRATIVE: CASE EVENT DATE: 20240419
